FAERS Safety Report 8043812-8 (Version None)
Quarter: 2012Q1

REPORT INFORMATION
  Report Type: 
  Country: None (occurrence: None)
  Receive Date: 20120113
  Receipt Date: 20120104
  Transmission Date: 20120608
  Serious: No
  Sender: FDA-Public Use
  Company Number: US-BIOGENIDEC-2012BI000504

PATIENT
  Age: 29 Year
  Sex: Male

DRUGS (4)
  1. TYSABRI [Suspect]
     Indication: CROHN'S DISEASE
     Route: 042
  2. AZATHIOPRINE [Concomitant]
     Indication: PRODUCT USED FOR UNKNOWN INDICATION
  3. TUMOR NECROSIS FACTOR - ALPHA INHIBITOR [Concomitant]
     Indication: PRODUCT USED FOR UNKNOWN INDICATION
  4. MERCAPTOPURINE [Concomitant]
     Indication: PRODUCT USED FOR UNKNOWN INDICATION

REACTIONS (1)
  - HEPATIC STEATOSIS [None]
